FAERS Safety Report 21299073 (Version 6)
Quarter: 2023Q2

REPORT INFORMATION
  Report Type: Spontaneous
  Country: US (occurrence: US)
  Receive Date: 20220906
  Receipt Date: 20230405
  Transmission Date: 20230721
  Serious: No
  Sender: FDA-Public Use
  Company Number: US-PFIZER INC-PV202200055981

PATIENT
  Age: 74 Year
  Sex: Male

DRUGS (3)
  1. INLYTA [Suspect]
     Active Substance: AXITINIB
     Dosage: UNK
     Dates: end: 202209
  2. INLYTA [Suspect]
     Active Substance: AXITINIB
     Dosage: UNK
     Dates: start: 20221007
  3. INLYTA [Suspect]
     Active Substance: AXITINIB
     Dosage: 5 MG, DAILY

REACTIONS (6)
  - Fatigue [Recovered/Resolved]
  - Somnolence [Recovered/Resolved]
  - Pruritus [Recovering/Resolving]
  - Asthenia [Recovering/Resolving]
  - Gait disturbance [Unknown]
  - Off label use [Unknown]

NARRATIVE: CASE EVENT DATE: 20220901
